FAERS Safety Report 12687251 (Version 2)
Quarter: 2016Q3

REPORT INFORMATION
  Report Type: Spontaneous
  Country: US (occurrence: US)
  Receive Date: 20160826
  Receipt Date: 20160926
  Transmission Date: 20161109
  Serious: No
  Sender: FDA-Public Use
  Company Number: US-APOTEX-2016AP009156

PATIENT
  Age: 66 Year
  Sex: Male
  Weight: 102.4 kg

DRUGS (1)
  1. CLARISPRAY NASAL ALLERGY [Suspect]
     Active Substance: FLUTICASONE PROPIONATE
     Indication: SEASONAL ALLERGY
     Dosage: 2 DF, UNK
     Route: 055
     Dates: start: 20160612

REACTIONS (7)
  - Product odour abnormal [Recovered/Resolved]
  - Product taste abnormal [Recovered/Resolved]
  - Sneezing [Recovered/Resolved]
  - Dysgeusia [Recovered/Resolved]
  - Rhinorrhoea [Recovered/Resolved]
  - Upper-airway cough syndrome [Recovered/Resolved]
  - Parosmia [Recovered/Resolved]

NARRATIVE: CASE EVENT DATE: 20160612
